FAERS Safety Report 23915050 (Version 1)
Quarter: 2024Q2

REPORT INFORMATION
  Report Type: Spontaneous
  Country: US (occurrence: US)
  Receive Date: 20240529
  Receipt Date: 20240529
  Transmission Date: 20240716
  Serious: No
  Sender: FDA-Public Use
  Company Number: US-PERRIGO-24US002099

PATIENT
  Age: 76 Year
  Sex: Male
  Weight: 67.574 kg

DRUGS (8)
  1. MINOXIDIL [Suspect]
     Active Substance: MINOXIDIL
     Indication: Alopecia
     Dosage: 1 CAPFUL, BID
     Route: 061
     Dates: start: 202307, end: 202401
  2. VITAMIN D NOS [Concomitant]
     Active Substance: CHOLECALCIFEROL\ERGOCALCIFEROL
     Indication: Vitamin D deficiency
     Dosage: UNK
     Route: 065
  3. ASPIRIN [Concomitant]
     Active Substance: ASPIRIN
     Indication: Prophylaxis
     Dosage: UNK
     Route: 065
  4. METOPROLOL [Concomitant]
     Active Substance: METOPROLOL
     Indication: Hypertension
     Dosage: UNK
     Route: 065
  5. FENOFIBRATE [Concomitant]
     Active Substance: FENOFIBRATE
     Indication: Blood cholesterol increased
     Dosage: UNK
     Route: 065
  6. CARDURA [Concomitant]
     Active Substance: DOXAZOSIN MESYLATE
     Indication: Prostatic disorder
     Dosage: UNK
     Route: 065
  7. AMLODIPINE BESYLATE [Concomitant]
     Active Substance: AMLODIPINE BESYLATE
     Indication: Hypertension
     Dosage: UNK
     Route: 065
  8. METFORMIN [Concomitant]
     Active Substance: METFORMIN HYDROCHLORIDE
     Indication: Prophylaxis
     Dosage: UNK
     Route: 065

REACTIONS (3)
  - Drug ineffective [Unknown]
  - Incorrect product administration duration [Unknown]
  - Incorrect dose administered [Unknown]

NARRATIVE: CASE EVENT DATE: 20230701
